FAERS Safety Report 7725390-3 (Version None)
Quarter: 2011Q3

REPORT INFORMATION
  Report Type: 
  Country: None (occurrence: None)
  Receive Date: 20110902
  Receipt Date: 20110829
  Transmission Date: 20111222
  Serious: No
  Sender: FDA-Public Use
  Company Number: US-PFIZER INC-2011201760

PATIENT
  Sex: Male
  Weight: 93 kg

DRUGS (2)
  1. COLESTID [Suspect]
     Dosage: UNK, 2X/DAY
     Route: 048
     Dates: start: 20110101
  2. DEPAKOTE [Concomitant]
     Dosage: UNK
     Route: 048

REACTIONS (4)
  - MEDICATION ERROR [None]
  - ABNORMAL FAECES [None]
  - OVERDOSE [None]
  - CONSTIPATION [None]
